FAERS Safety Report 7096139-5 (Version None)
Quarter: 2010Q4

REPORT INFORMATION
  Report Type: 
  Country: None (occurrence: None)
  Receive Date: 20101111
  Receipt Date: 20101026
  Transmission Date: 20110411
  Serious: Yes (Other)
  Sender: FDA-Public Use
  Company Number: FR-ROCHE-737389

PATIENT
  Sex: Male
  Weight: 68 kg

DRUGS (4)
  1. TOCILIZUMAB [Suspect]
     Indication: RHEUMATOID ARTHRITIS
     Dosage: LOADING DOSE: 8 MG/KG FORM: ILLEGIBLE
     Route: 042
     Dates: start: 20100112, end: 20100906
  2. SPECIAFOLDINE [Concomitant]
     Dates: start: 20090205
  3. DOLIPRANE [Concomitant]
     Dates: start: 20090205
  4. CARTREX [Concomitant]
     Dates: start: 20100401

REACTIONS (1)
  - RHEUMATOID NODULE [None]
